FAERS Safety Report 22274001 (Version 3)
Quarter: 2024Q3

REPORT INFORMATION
  Report Type: Spontaneous
  Country: US (occurrence: US)
  Receive Date: 20230502
  Receipt Date: 20240702
  Transmission Date: 20241016
  Serious: No
  Sender: BIOGEN
  Company Number: US-BIOGEN-2021BI01066794

PATIENT
  Age: 63 Year
  Sex: Female

DRUGS (36)
  1. VUMERITY [Suspect]
     Active Substance: DIROXIMEL FUMARATE
     Indication: Multiple sclerosis
     Route: 050
     Dates: start: 20211017, end: 20211023
  2. VUMERITY [Suspect]
     Active Substance: DIROXIMEL FUMARATE
     Route: 050
     Dates: start: 20211024
  3. NORCO [Concomitant]
     Active Substance: ACETAMINOPHEN\HYDROCODONE BITARTRATE
     Dosage: 10-300MG, ORDERED AS 1 TAB EVERY 6 HOURS
     Route: 050
  4. TYLENOL [Concomitant]
     Active Substance: ACETAMINOPHEN
     Indication: Arthritis
     Route: 050
  5. MUPIROCIN [Concomitant]
     Active Substance: MUPIROCIN
     Dosage: 2% OINT 22GM
     Route: 050
  6. TRAZODONE HCL [Concomitant]
     Active Substance: TRAZODONE HYDROCHLORIDE
     Route: 050
  7. FLUTICASONE PROPIONATE [Concomitant]
     Active Substance: FLUTICASONE PROPIONATE
     Route: 050
  8. ASPIRIN [Concomitant]
     Active Substance: ASPIRIN
     Route: 050
  9. CBD KINGS [Concomitant]
     Route: 050
  10. XANAX [Concomitant]
     Active Substance: ALPRAZOLAM
     Route: 050
  11. VITAMIN E [Concomitant]
     Active Substance: .ALPHA.-TOCOPHEROL
     Route: 050
  12. PYRIDOXINE [Concomitant]
     Active Substance: PYRIDOXINE
     Route: 050
  13. VITAMIN D3 [Concomitant]
     Active Substance: CHOLECALCIFEROL
     Route: 050
  14. NORCO [Concomitant]
     Active Substance: ACETAMINOPHEN\HYDROCODONE BITARTRATE
     Route: 050
  15. GABAPENTIN [Concomitant]
     Active Substance: GABAPENTIN
     Route: 050
  16. UREA [Concomitant]
     Active Substance: UREA
     Route: 050
  17. MELOXICAM [Concomitant]
     Active Substance: MELOXICAM
     Route: 050
  18. METAMUCIL [Concomitant]
     Active Substance: PLANTAGO SEED
     Route: 050
  19. OMEGA 3 [Concomitant]
     Active Substance: CAPSAICIN
     Route: 050
  20. VYVANSE [Concomitant]
     Active Substance: LISDEXAMFETAMINE DIMESYLATE
     Route: 050
  21. ADDERALL [Concomitant]
     Active Substance: AMPHETAMINE ASPARTATE\AMPHETAMINE SULFATE\DEXTROAMPHETAMINE SACCHARATE\DEXTROAMPHETAMINE SULFATE
     Route: 050
  22. LISINOPRIL AND HYDROCHLOROTHIAZIDE [Concomitant]
     Active Substance: HYDROCHLOROTHIAZIDE\LISINOPRIL
     Route: 050
  23. METFORMIN HYDROCHLORIDE [Concomitant]
     Active Substance: METFORMIN HYDROCHLORIDE
     Route: 050
  24. FENOFIBRATE [Concomitant]
     Active Substance: FENOFIBRATE
     Route: 050
  25. LASIX [Concomitant]
     Active Substance: FUROSEMIDE
     Route: 050
  26. PANTOPRAZOLE SODIUM [Concomitant]
     Active Substance: PANTOPRAZOLE SODIUM
     Route: 050
  27. TIZANIDINE HYDROCHLORIDE [Concomitant]
     Active Substance: TIZANIDINE HYDROCHLORIDE
     Route: 050
  28. PAROXETINE HYDROCHLORIDE [Concomitant]
     Active Substance: PAROXETINE HYDROCHLORIDE\PAROXETINE HYDROCHLORIDE ANHYDROUS
     Route: 050
  29. BOTOX [Concomitant]
     Active Substance: ONABOTULINUMTOXINA
     Dosage: LDD-BOTOX 200 UNIT VIAL
     Route: 050
  30. MAGNESIUM [Concomitant]
     Active Substance: MAGNESIUM
     Route: 050
  31. HERBALS\TURMERIC [Concomitant]
     Active Substance: HERBALS\TURMERIC
     Route: 050
  32. CURCUMIN [Concomitant]
     Active Substance: CURCUMIN
     Route: 050
  33. AQUAPHOR [Concomitant]
     Active Substance: PETROLATUM
     Route: 050
  34. GAVISCON [Concomitant]
     Active Substance: ALUMINUM HYDROXIDE\MAGNESIUM CARBONATE
     Route: 050
  35. COLACE [Concomitant]
     Active Substance: DOCUSATE SODIUM
     Route: 050
  36. VOLTAREN [Concomitant]
     Active Substance: DICLOFENAC SODIUM
     Route: 050

REACTIONS (4)
  - Product dose omission in error [Unknown]
  - Product dose omission issue [Unknown]
  - Multiple sclerosis [Unknown]
  - Multiple sclerosis relapse [Recovered/Resolved]

NARRATIVE: CASE EVENT DATE: 20211101
